FAERS Safety Report 9476709 (Version 2)
Quarter: 2013Q3

REPORT INFORMATION
  Report Type: Spontaneous
  Country: US (occurrence: US)
  Receive Date: 20130826
  Receipt Date: 20130826
  Transmission Date: 20140515
  Serious: No
  Sender: FDA-Public Use
  Company Number: US-BRISTOL-MYERS SQUIBB COMPANY-16928780

PATIENT
  Age: 75 Year
  Sex: Female

DRUGS (7)
  1. KENALOG-40 INJ [Suspect]
     Dates: start: 20120822
  2. MARCAINE [Suspect]
     Dosage: MARCAINE 0.25%
  3. LIDOCAINE [Suspect]
     Dosage: LIDOCAINE 1%
  4. COUMADIN [Concomitant]
     Dosage: 2.5MG:TUESDAY, THURSDAY, SATURDAY AND SUNDAY.5MG:EVERY OTHER DAY OF THE WEEK;5.5MG
  5. DILTIAZEM ER [Concomitant]
     Indication: ARRHYTHMIA
  6. TOPROL XL [Concomitant]
     Indication: HYPERTENSION
  7. INSPRA [Concomitant]

REACTIONS (3)
  - Hypersensitivity [Unknown]
  - Palpitations [Unknown]
  - White blood cell count increased [Unknown]
